FAERS Safety Report 14854000 (Version 1)
Quarter: 2018Q2

REPORT INFORMATION
  Report Type: Spontaneous
  Country: ES (occurrence: ES)
  Receive Date: 20180507
  Receipt Date: 20180507
  Transmission Date: 20180711
  Serious: Yes (Hospitalization)
  Sender: FDA-Public Use
  Company Number: PHHY2018ES002529

PATIENT
  Age: 89 Year
  Sex: Female

DRUGS (2)
  1. EPLERENONA [Concomitant]
     Active Substance: EPLERENONE
     Indication: OEDEMA
     Dosage: 25 MG, BID
     Route: 048
     Dates: start: 2016, end: 20170905
  2. FUROSEMID [Suspect]
     Active Substance: FUROSEMIDE
     Indication: OEDEMA
     Dosage: 120 MG, QD
     Route: 048
     Dates: start: 20170815, end: 20170905

REACTIONS (2)
  - Hypokalaemia [Recovered/Resolved]
  - Acute kidney injury [Recovered/Resolved]

NARRATIVE: CASE EVENT DATE: 20170905
